FAERS Safety Report 7080190-5 (Version None)
Quarter: 2010Q4

REPORT INFORMATION
  Report Type: 
  Country: None (occurrence: None)
  Receive Date: 20101103
  Receipt Date: 20101025
  Transmission Date: 20110411
  Serious: No
  Sender: FDA-Public Use
  Company Number: US-BIOGENIDEC-2010BI030664

PATIENT
  Age: 51 Year
  Sex: Male

DRUGS (5)
  1. TYSABRI [Suspect]
     Indication: MULTIPLE SCLEROSIS
     Route: 042
     Dates: start: 20041221
  2. TYSABRI [Suspect]
     Route: 042
     Dates: start: 20091109, end: 20091109
  3. TYSABRI [Suspect]
     Route: 042
     Dates: start: 20100513, end: 20100708
  4. AVONEX [Concomitant]
     Indication: MULTIPLE SCLEROSIS
     Route: 030
     Dates: start: 20030109
  5. AVONEX [Concomitant]
     Route: 030
     Dates: start: 20091101

REACTIONS (12)
  - BLOOD PRESSURE INCREASED [None]
  - GAIT DISTURBANCE [None]
  - HEMICEPHALALGIA [None]
  - HYPOAESTHESIA [None]
  - LOSS OF CONTROL OF LEGS [None]
  - MEMORY IMPAIRMENT [None]
  - MOBILITY DECREASED [None]
  - MULTIPLE SCLEROSIS RELAPSE [None]
  - NASAL CONGESTION [None]
  - SNEEZING [None]
  - VISION BLURRED [None]
  - VISUAL IMPAIRMENT [None]
